FAERS Safety Report 15257805 (Version 1)
Quarter: 2018Q3

REPORT INFORMATION
  Report Type: Spontaneous
  Country: US (occurrence: US)
  Receive Date: 20180718
  Receipt Date: 20180718
  Transmission Date: 20181010
  Serious: Yes (Hospitalization)
  Sender: FDA-Public Use
  Company Number: None

PATIENT
  Age: 56 Year
  Sex: Male

DRUGS (1)
  1. LORAZEPAM. [Suspect]
     Active Substance: LORAZEPAM
     Indication: SEIZURE
     Route: 042
     Dates: start: 20180705, end: 20180707

REACTIONS (13)
  - Treatment noncompliance [None]
  - Mental status changes [None]
  - Muscular weakness [None]
  - Leukopenia [None]
  - Sedation [None]
  - Blood lactic acid increased [None]
  - Postictal state [None]
  - Encephalopathy [None]
  - Drug screen positive [None]
  - Seizure [None]
  - Encephalomalacia [None]
  - Toxicity to various agents [None]
  - Lipase increased [None]

NARRATIVE: CASE EVENT DATE: 20180705
